FAERS Safety Report 11583893 (Version 1)
Quarter: 2015Q3

REPORT INFORMATION
  Report Type: Spontaneous
  Country: None (occurrence: None)
  Receive Date: 20150930
  Receipt Date: 20150930
  Transmission Date: 20151125
  Serious: No
  Sender: FDA-Public Use
  Company Number: None

PATIENT
  Age: 57 Year
  Sex: Female
  Weight: 50.35 kg

DRUGS (2)
  1. KADCYLA [Suspect]
     Active Substance: ADO-TRASTUZUMAB EMTANSINE
     Indication: BREAST CANCER METASTATIC
     Dates: start: 20131101, end: 20150714
  2. KADCYLA [Suspect]
     Active Substance: ADO-TRASTUZUMAB EMTANSINE
     Indication: HER-2 POSITIVE BREAST CANCER
     Dates: start: 20131101, end: 20150714

REACTIONS (5)
  - Vision blurred [None]
  - Weight decreased [None]
  - Fatigue [None]
  - Epistaxis [None]
  - Hepatic enzyme increased [None]

NARRATIVE: CASE EVENT DATE: 20150501
